FAERS Safety Report 17075053 (Version 1)
Quarter: 2019Q4

REPORT INFORMATION
  Report Type: Spontaneous
  Country: IL (occurrence: IL)
  Receive Date: 20191126
  Receipt Date: 20191126
  Transmission Date: 20200122
  Serious: Yes (Other)
  Sender: FDA-Public Use
  Company Number: IL-PFIZER INC-2019506272

PATIENT
  Age: 47 Year
  Sex: Female

DRUGS (15)
  1. CLEXANE [Concomitant]
     Active Substance: ENOXAPARIN SODIUM
     Dosage: UNK
  2. ADDAMEL N [Concomitant]
     Active Substance: CHROMIC CHLORIDE\CUPROUS CHLORIDE\FERRIC CHLORIDE\MANGANESE CHLORIDE\POTASSIUM IODIDE\SODIUM FLUORIDE\SODIUM MOLYBDATE DIHYDRATE\SODIUM SELENITE\ZINC CHLORIDE
     Dosage: UNK
  3. TRAMAL [Concomitant]
     Active Substance: TRAMADOL
  4. PARACETAMOL B. BRAUN [Concomitant]
     Active Substance: ACETAMINOPHEN
     Dosage: UNK
  5. FLUCONAZOLE AVENIR [Concomitant]
     Dosage: UNK
  6. ONDANSETRON [Concomitant]
     Active Substance: ONDANSETRON
     Dosage: UNK
  7. CEFTRIAXONE PANPHARMA [Concomitant]
     Active Substance: CEFTRIAXONE
     Dosage: UNK
  8. PANTOPRAZOLE AVENIR [Concomitant]
     Dosage: UNK
     Route: 042
  9. PIPERACILLIN/TAZOBACTAM PANPHARMA [Concomitant]
     Active Substance: PIPERACILLIN SODIUM\TAZOBACTAM SODIUM
     Dosage: UNK
  10. METRONIDAZOLE. [Concomitant]
     Active Substance: METRONIDAZOLE
     Dosage: UNK
  11. ERAXIS [Suspect]
     Active Substance: ANIDULAFUNGIN
     Dosage: 200 MG, UNK
     Dates: start: 20191115
  12. CERNEVIT [Concomitant]
     Active Substance: VITAMINS
     Dosage: UNK
  13. PENIBRIN [AMPICILLIN SODIUM] [Concomitant]
     Dosage: UNK
  14. PRAMIN [METOCLOPRAMIDE HYDROCHLORIDE] [Concomitant]
     Active Substance: METOCLOPRAMIDE HYDROCHLORIDE
     Dosage: UNK
  15. SMOFKABIVEN [Concomitant]
     Active Substance: AMINO ACIDS\DEXTROSE\ELECTROLYTES NOS\SOYBEAN OIL
     Dosage: UNK

REACTIONS (5)
  - Feeling hot [Unknown]
  - Erythema [Unknown]
  - Restlessness [Unknown]
  - Chest pain [Unknown]
  - Dyspnoea [Unknown]
